FAERS Safety Report 22035391 (Version 1)
Quarter: 2023Q1

REPORT INFORMATION
  Report Type: Spontaneous
  Country: US (occurrence: None)
  Receive Date: 20230223
  Receipt Date: 20230223
  Transmission Date: 20230417
  Serious: Yes (Other)
  Sender: FDA-Public Use
  Company Number: None

PATIENT
  Age: 43 Year
  Sex: Female
  Weight: 90.4 kg

DRUGS (1)
  1. CHLORHEXIDINE [Suspect]
     Active Substance: CHLORHEXIDINE
     Indication: Antibiotic prophylaxis
     Dosage: OTHER FREQUENCY : JUST ONCE;?
     Route: 061
     Dates: start: 20230221, end: 20230222

REACTIONS (8)
  - Blister [None]
  - Urticaria [None]
  - Rash papular [None]
  - Skin burning sensation [None]
  - Swelling [None]
  - Pain [None]
  - Rash erythematous [None]
  - Pruritus [None]

NARRATIVE: CASE EVENT DATE: 20230222
